FAERS Safety Report 25247860 (Version 3)
Quarter: 2025Q4

REPORT INFORMATION
  Report Type: Report from Study
  Country: EG (occurrence: EG)
  Receive Date: 20250429
  Receipt Date: 20251230
  Transmission Date: 20260117
  Serious: Yes (Other)
  Sender: ABBVIE
  Company Number: EG-ABBVIE-6154350

PATIENT
  Age: 28 Year
  Sex: Male

DRUGS (10)
  1. HUMIRA [Suspect]
     Active Substance: ADALIMUMAB
     Indication: Uveitis
     Dosage: 1 SYRINGE?FORM STRENGTH: HUMIRA 40MG
     Route: 058
     Dates: start: 20240212
  2. HUMIRA [Suspect]
     Active Substance: ADALIMUMAB
     Dosage: 1 SYRINGE?FORM STRENGTH: HUMIRA 40MG
     Route: 058
  3. HUMIRA [Suspect]
     Active Substance: ADALIMUMAB
     Dosage: ONE SYRINGE
     Route: 058
  4. CORTISONE [Concomitant]
     Active Substance: CORTISONE
     Indication: Uveitis
     Dosage: FORM STRENGTH: 20 MILLIGRAM; START DATE: BEFORE HUMIRA
  5. CORTISONE [Concomitant]
     Active Substance: CORTISONE
     Indication: Uveitis
     Dosage: 1 TABLET; FORM STRENGTH: 5 MILLIGRAM; START DATE: AFTER HUMIRA
  6. CORTISONE [Concomitant]
     Active Substance: CORTISONE
     Indication: Uveitis
  7. Solupred [Concomitant]
     Indication: Product used for unknown indication
     Dosage: FORM STRENGTH: 20 MILLIGRAM; START DATE: ALONG WITH HUMIRA
  8. CALCIUM [Concomitant]
     Active Substance: CALCIUM
     Indication: Bone disorder
     Dosage: START DATE: BEFORE HUMIRA
  9. Somadril [Concomitant]
     Indication: Product used for unknown indication
     Dosage: FORM STRENGTH: 20 MILLIGRAM; START DATE: BEFORE HUMIRA
  10. IRON [Concomitant]
     Active Substance: IRON
     Indication: Bone disorder

REACTIONS (8)
  - Blindness [Recovered/Resolved]
  - Ulcer [Unknown]
  - Eye pain [Recovered/Resolved]
  - Therapeutic product effect decreased [Not Recovered/Not Resolved]
  - Eye disorder [Not Recovered/Not Resolved]
  - Ocular hyperaemia [Unknown]
  - Lacrimation increased [Unknown]
  - Visual impairment [Unknown]

NARRATIVE: CASE EVENT DATE: 20240101
